FAERS Safety Report 25979958 (Version 2)
Quarter: 2025Q4

REPORT INFORMATION
  Report Type: Report from Study
  Country: GB (occurrence: GB)
  Receive Date: 20251030
  Receipt Date: 20251118
  Transmission Date: 20260117
  Serious: Yes (Other)
  Sender: ITALFARMACO SPA
  Company Number: GB-ITALFARMACO SPA-2187561

PATIENT
  Sex: Male
  Weight: 25.6 kg

DRUGS (4)
  1. DUVYZAT [Suspect]
     Active Substance: GIVINOSTAT
     Indication: Duchenne muscular dystrophy
     Dates: start: 20250609
  2. PREDNISOLONE [Concomitant]
     Active Substance: PREDNISOLONE
  3. LANSOPRAZOLE [Concomitant]
     Active Substance: LANSOPRAZOLE
  4. VITAMIN D NOS [Concomitant]
     Active Substance: CHOLECALCIFEROL\ERGOCALCIFEROL

REACTIONS (2)
  - Oedema peripheral [Not Recovered/Not Resolved]
  - Illness [Unknown]
